FAERS Safety Report 20328869 (Version 1)
Quarter: 2022Q1

REPORT INFORMATION
  Report Type: Spontaneous
  Country: US (occurrence: None)
  Receive Date: 20220112
  Receipt Date: 20220112
  Transmission Date: 20220423
  Serious: Yes (unspecified)
  Sender: FDA-Public Use
  Company Number: None

PATIENT
  Age: 66 Year
  Sex: Female

DRUGS (1)
  1. BOSULIF [Suspect]
     Active Substance: BOSUTINIB MONOHYDRATE

REACTIONS (7)
  - Rash [None]
  - Diarrhoea [None]
  - Rash [None]
  - Pain [None]
  - Arthralgia [None]
  - Therapeutic product effect incomplete [None]
  - Rash pruritic [None]

NARRATIVE: CASE EVENT DATE: 20220109
